FAERS Safety Report 13457079 (Version 1)
Quarter: 2017Q2

REPORT INFORMATION
  Report Type: Spontaneous
  Country: US (occurrence: US)
  Receive Date: 20170418
  Receipt Date: 20170418
  Transmission Date: 20170830
  Serious: No
  Sender: FDA-Public Use
  Company Number: None

PATIENT
  Age: 70 Year
  Sex: Male

DRUGS (5)
  1. VENLAFAXINE ER [Suspect]
     Active Substance: VENLAFAXINE HYDROCHLORIDE
     Indication: DEPRESSION
     Route: 048
  2. RANITIDINE. [Concomitant]
     Active Substance: RANITIDINE
  3. LISINOPRIL. [Concomitant]
     Active Substance: LISINOPRIL
  4. VENLAFAXINE ER [Suspect]
     Active Substance: VENLAFAXINE HYDROCHLORIDE
     Indication: DEPRESSION
     Route: 048
  5. ATORVASTATIN [Concomitant]
     Active Substance: ATORVASTATIN

REACTIONS (1)
  - Paraesthesia [None]

NARRATIVE: CASE EVENT DATE: 20170418
